FAERS Safety Report 18670315 (Version 1)
Quarter: 2020Q4

REPORT INFORMATION
  Report Type: Spontaneous
  Country: TH (occurrence: TH)
  Receive Date: 20201228
  Receipt Date: 20201228
  Transmission Date: 20210114
  Serious: Yes (Other)
  Sender: FDA-Public Use
  Company Number: NVSC2020TH336027

PATIENT
  Age: 28 Year
  Sex: Female

DRUGS (3)
  1. AFINITOR [Suspect]
     Active Substance: EVEROLIMUS
     Indication: TUBEROUS SCLEROSIS COMPLEX
     Dosage: 10 MG, QD
     Route: 065
     Dates: start: 20141002
  2. AFINITOR [Suspect]
     Active Substance: EVEROLIMUS
     Indication: PARTIAL SEIZURES
  3. AFINITOR [Suspect]
     Active Substance: EVEROLIMUS
     Indication: ANGIOMYOLIPOMA

REACTIONS (2)
  - Product use in unapproved indication [Unknown]
  - Neoplasm progression [Unknown]
